FAERS Safety Report 15437976 (Version 1)
Quarter: 2018Q3

REPORT INFORMATION
  Report Type: Spontaneous
  Country: US (occurrence: US)
  Receive Date: 20180928
  Receipt Date: 20180928
  Transmission Date: 20181010
  Serious: Yes (Other)
  Sender: FDA-Public Use
  Company Number: US-ASTRAZENECA-2018SF20671

PATIENT
  Sex: Female
  Weight: 72.6 kg

DRUGS (1)
  1. PRILOSEC [Suspect]
     Active Substance: OMEPRAZOLE MAGNESIUM
     Indication: GASTROOESOPHAGEAL REFLUX DISEASE
     Dosage: AS REQUIRED
     Route: 048

REACTIONS (10)
  - Dysphonia [Unknown]
  - Off label use [Recovered/Resolved]
  - Deafness [Unknown]
  - Vocal cord cyst [Recovered/Resolved]
  - Oesophageal disorder [Unknown]
  - Dyspepsia [Unknown]
  - Gastrooesophageal sphincter insufficiency [Unknown]
  - Pruritus [Unknown]
  - Sleep apnoea syndrome [Unknown]
  - Product use issue [Unknown]
